FAERS Safety Report 9590183 (Version 2)
Quarter: 2013Q4

REPORT INFORMATION
  Report Type: Spontaneous
  Country: US (occurrence: US)
  Receive Date: 20131003
  Receipt Date: 20131003
  Transmission Date: 20140711
  Serious: No
  Sender: FDA-Public Use
  Company Number: US-AMGEN-USASP2012071013

PATIENT
  Age: 30 Year
  Sex: Male
  Weight: 100 kg

DRUGS (4)
  1. ENBREL [Suspect]
     Indication: PSORIASIS
     Dosage: 2 TIMES/WK
     Route: 058
     Dates: start: 20101011, end: 20110404
  2. PRILOSEC                           /00661201/ [Concomitant]
     Dosage: UNK
  3. HALOBETASOL PROP [Concomitant]
     Dosage: UNK
  4. IBUPROFEN [Concomitant]
     Dosage: UNK

REACTIONS (1)
  - Drug ineffective [Unknown]
